FAERS Safety Report 16740841 (Version 1)
Quarter: 2019Q3

REPORT INFORMATION
  Report Type: Report from Study
  Country: US (occurrence: US)
  Receive Date: 20190826
  Receipt Date: 20190826
  Transmission Date: 20191005
  Serious: Yes (Other)
  Sender: FDA-Public Use
  Company Number: US-JNJFOC-20190127756

PATIENT
  Age: 77 Year

DRUGS (2)
  1. IMBRUVICA [Suspect]
     Active Substance: IBRUTINIB
     Indication: CHRONIC LYMPHOCYTIC LEUKAEMIA
     Route: 048
     Dates: start: 20180401
  2. IMBRUVICA [Suspect]
     Active Substance: IBRUTINIB
     Indication: CHRONIC LYMPHOCYTIC LEUKAEMIA
     Route: 065
     Dates: start: 20140130

REACTIONS (5)
  - Cardiac pacemaker insertion [Unknown]
  - Malaise [Unknown]
  - Blood pressure abnormal [Unknown]
  - Blood test abnormal [Unknown]
  - Contusion [Unknown]

NARRATIVE: CASE EVENT DATE: 20190715
